FAERS Safety Report 4767723-6 (Version None)
Quarter: 2005Q3

REPORT INFORMATION
  Report Type: 
  Country: None (occurrence: None)
  Receive Date: 20050912
  Receipt Date: 20050826
  Transmission Date: 20060218
  Serious: Yes (Other)
  Sender: FDA-Public Use
  Company Number: DSA_70699_2005

PATIENT
  Age: 64 Year
  Sex: Female
  Weight: 64 kg

DRUGS (2)
  1. AZATHIOPRINE [Suspect]
     Indication: RHEUMATOID ARTHRITIS
     Dosage: 100 MG QDAY PO
     Route: 048
     Dates: start: 20050101
  2. ENBREL [Suspect]
     Indication: RHEUMATOID ARTHRITIS
     Dosage: 25 MG 2XWK SC
     Route: 058
     Dates: start: 20040331, end: 20050610

REACTIONS (7)
  - ABDOMINAL DISCOMFORT [None]
  - ASCITES [None]
  - DIVERTICULITIS [None]
  - MASS [None]
  - OVARIAN CANCER [None]
  - URINARY TRACT INFECTION [None]
  - WEIGHT DECREASED [None]
